FAERS Safety Report 5891925-9 (Version None)
Quarter: 2008Q3

REPORT INFORMATION
  Report Type: 
  Country: None (occurrence: None)
  Receive Date: 20080918
  Receipt Date: 20080916
  Transmission Date: 20090109
  Serious: Yes (Death, Life-Threatening, Disabling, Other)
  Sender: FDA-Public Use
  Company Number: 2008JP003991

PATIENT
  Age: 44 Year
  Sex: Female
  Weight: 62 kg

DRUGS (22)
  1. PROGRAF [Suspect]
     Indication: BONE MARROW TRANSPLANT
     Dosage: 1.1 MG, UID/QD, IV NOS
     Route: 042
     Dates: start: 20080508, end: 20080514
  2. BFLUID INJECTION [Concomitant]
  3. NASEA (RAMOSETRON HYDROCHLORIDE) INJECTION [Concomitant]
  4. FLUDARA [Concomitant]
  5. HANP INJECTION [Concomitant]
  6. LASIX (FUROSEMIDE) INJECTION [Concomitant]
  7. NEUPOGEN [Concomitant]
  8. FUNGUARD (MICAFUNGIN) INJECTION [Concomitant]
  9. BUSULFEX [Concomitant]
  10. NEOPAREN 1 INJECTION [Concomitant]
  11. NEOPAREN 2 INJECTION [Concomitant]
  12. OMEPRAL (OMEPRAZOLE SODIUM) INJECTION [Concomitant]
  13. FIRSTCIN (CEFOZOPRAN HYDROCHLORIDE) INJECTION [Concomitant]
  14. ACYCLOVIR [Concomitant]
  15. DUROTEP (FENTANYL) TAPE [Concomitant]
  16. LOXONIN (LOXOPROFEN SODIUM) TABLET [Concomitant]
  17. BUSCOPAN (HYOSCINE BUTYLBROMIDE) INJECTION [Concomitant]
  18. PENTAGIN (PENTAAOCINE LACTATE) INJECTION [Concomitant]
  19. ADALAT [Concomitant]
  20. LIDOCAINE [Concomitant]
  21. SERENACE 9HALOPERRIDOL) INJECTION [Concomitant]
  22. KETALAR (KETAMINE HYDROCHLORIDE) INJECTION [Concomitant]

REACTIONS (13)
  - ABDOMINAL PAIN UPPER [None]
  - BACK PAIN [None]
  - BLOOD PRESSURE DECREASED [None]
  - DISSEMINATED INTRAVASCULAR COAGULATION [None]
  - FEBRILE NEUTROPENIA [None]
  - HEART RATE DECREASED [None]
  - HEART RATE INCREASED [None]
  - NAUSEA [None]
  - PEPTIC ULCER [None]
  - PO2 DECREASED [None]
  - POST TRANSPLANT DISTAL LIMB SYNDROME [None]
  - VENTRICULAR EXTRASYSTOLES [None]
  - VOMITING [None]
